FAERS Safety Report 6466293-4 (Version None)
Quarter: 2009Q4

REPORT INFORMATION
  Report Type: 
  Country: None (occurrence: None)
  Receive Date: 20091202
  Receipt Date: 20091125
  Transmission Date: 20100525
  Serious: Yes (Hospitalization, Other)
  Sender: FDA-Public Use
  Company Number: PHEH2009US13142

PATIENT
  Sex: Female

DRUGS (16)
  1. EXJADE [Suspect]
     Indication: HAEMOCHROMATOSIS
     Dosage: 1000 MG DAILY
     Route: 048
     Dates: start: 20070830
  2. EXJADE [Suspect]
     Indication: SERUM FERRITIN INCREASED
  3. NEXIUM [Concomitant]
     Dosage: 40 MG, QD
  4. PROZAC [Concomitant]
     Dosage: 10 MG, QD
  5. LASIX [Concomitant]
     Dosage: 40 MG, QD
  6. K-DUR [Concomitant]
     Dosage: 10 MEQ, QD
  7. PREDNISONE TAB [Concomitant]
     Dosage: 10 MG, QD
     Dates: end: 20090905
  8. AMBIEN [Concomitant]
     Dosage: 5 MG, QD
  9. AMBIEN [Concomitant]
     Dosage: 10 MG, PRN
  10. POLYMYXIN [Concomitant]
  11. FELDENE [Concomitant]
  12. PRED FORTE [Concomitant]
     Dosage: 1 DROP OU BID
  13. PROPRANOLOL [Concomitant]
     Dosage: 100 MG, BID
     Route: 048
  14. VITAMIN D [Concomitant]
     Route: 048
  15. XALATAN [Concomitant]
     Dosage: 0.005% OPTHAL QHS
  16. MULTIVITAMIN [Concomitant]
     Dosage: 2 TABS PO QD

REACTIONS (21)
  - ABDOMINAL ABSCESS [None]
  - ABDOMINAL PAIN [None]
  - ADRENAL INSUFFICIENCY [None]
  - AORTIC STENOSIS [None]
  - CARDIAC FAILURE CONGESTIVE [None]
  - CHEST PAIN [None]
  - CLOSTRIDIUM DIFFICILE COLITIS [None]
  - DIVERTICULUM [None]
  - EMPYEMA [None]
  - EYELID PTOSIS [None]
  - FATIGUE [None]
  - FUNGAL INFECTION [None]
  - HYPERGLYCAEMIA [None]
  - HYPOKALAEMIA [None]
  - HYPOTENSION [None]
  - MALIGNANT NEOPLASM PROGRESSION [None]
  - MALNUTRITION [None]
  - PLEURAL EFFUSION [None]
  - RENAL FAILURE ACUTE [None]
  - SEPSIS [None]
  - THORACIC CAVITY DRAINAGE [None]
